FAERS Safety Report 18300805 (Version 29)
Quarter: 2025Q2

REPORT INFORMATION
  Report Type: Report from Study
  Country: US (occurrence: US)
  Receive Date: 20200923
  Receipt Date: 20250626
  Transmission Date: 20250716
  Serious: Yes (Hospitalization, Other)
  Sender: TAKEDA
  Company Number: US-SHIRE-US202030950

PATIENT
  Age: 71 Year
  Sex: Female
  Weight: 88 kg

DRUGS (34)
  1. HUMAN IMMUNOGLOBULIN G [Suspect]
     Active Substance: HUMAN IMMUNOGLOBULIN G
     Indication: Immunodeficiency common variable
     Dosage: 15 GRAM, Q2WEEKS
     Dates: start: 20200118
  2. HUMAN IMMUNOGLOBULIN G [Suspect]
     Active Substance: HUMAN IMMUNOGLOBULIN G
     Indication: Immunodeficiency
     Dosage: 15 GRAM, Q2WEEKS
     Dates: start: 20200501
  3. HUMAN IMMUNOGLOBULIN G [Suspect]
     Active Substance: HUMAN IMMUNOGLOBULIN G
     Indication: Congenital hypogammaglobulinaemia
     Dosage: 10 GRAM, Q2WEEKS
  4. HUMAN IMMUNOGLOBULIN G [Suspect]
     Active Substance: HUMAN IMMUNOGLOBULIN G
     Dosage: 12 GRAM, Q2WEEKS
  5. MEDROL [Suspect]
     Active Substance: METHYLPREDNISOLONE
     Indication: Product used for unknown indication
  6. ACETAMINOPHEN [Concomitant]
     Active Substance: ACETAMINOPHEN
  7. DIPHENHYDRAMINE [Concomitant]
     Active Substance: DIPHENHYDRAMINE
  8. PREDNISONE [Concomitant]
     Active Substance: PREDNISONE
  9. ACIPHEX SPRINKLE [Concomitant]
     Active Substance: RABEPRAZOLE SODIUM
  10. EPINEPHRINE [Concomitant]
     Active Substance: EPINEPHRINE
  11. CALCIUM CITRATE\CHOLECALCIFEROL [Concomitant]
     Active Substance: CALCIUM CITRATE\CHOLECALCIFEROL
  12. MEMANTINE [Concomitant]
     Active Substance: MEMANTINE
  13. FLUTICASONE PROPIONATE [Concomitant]
     Active Substance: FLUTICASONE PROPIONATE
  14. ZYRTEC [Concomitant]
     Active Substance: CETIRIZINE HYDROCHLORIDE
  15. LIDOCAINE [Concomitant]
     Active Substance: LIDOCAINE
     Indication: Product used for unknown indication
  16. PANTOPRAZOLE [Concomitant]
     Active Substance: PANTOPRAZOLE
  17. ZINC [Concomitant]
     Active Substance: ZINC
  18. ADVAIR HFA [Concomitant]
     Active Substance: FLUTICASONE PROPIONATE\SALMETEROL XINAFOATE
  19. STRONTIUM CHLORIDE [Concomitant]
     Active Substance: STRONTIUM CHLORIDE
  20. BIOTIN [Concomitant]
     Active Substance: BIOTIN
  21. SINGULAIR [Concomitant]
     Active Substance: MONTELUKAST SODIUM
  22. VENTOLIN HFA [Concomitant]
     Active Substance: ALBUTEROL SULFATE
  23. COLLOIDAL SILVER [Concomitant]
     Active Substance: SILVER
  24. AZELASTINE HYDROCHLORIDE [Concomitant]
     Active Substance: AZELASTINE HYDROCHLORIDE
  25. ALBUTEROL SULFATE [Concomitant]
     Active Substance: ALBUTEROL SULFATE
  26. ALBUTEROL SULFATE [Concomitant]
     Active Substance: ALBUTEROL SULFATE
  27. CALCIUM CARBONATE\CHOLECALCIFEROL [Concomitant]
     Active Substance: CALCIUM CARBONATE\CHOLECALCIFEROL
  28. LIDOCAINE\PRILOCAINE [Concomitant]
     Active Substance: LIDOCAINE\PRILOCAINE
  29. VITAMIN D3 [Concomitant]
     Active Substance: CHOLECALCIFEROL
  30. MENAQUINONE 6 [Concomitant]
     Active Substance: MENAQUINONE 6
  31. ARGININE [Concomitant]
     Active Substance: ARGININE
  32. DIPHENHYDRAMINE HYDROCHLORIDE [Concomitant]
     Active Substance: DIPHENHYDRAMINE HYDROCHLORIDE
  33. VITAMIN B [Concomitant]
     Active Substance: VITAMIN B
  34. ZINC GLUCONATE [Concomitant]
     Active Substance: ZINC GLUCONATE

REACTIONS (38)
  - Haemorrhage [Unknown]
  - Kidney infection [Unknown]
  - Autoimmune disorder [Unknown]
  - Pneumonia [Unknown]
  - Infection [Unknown]
  - Dysphonia [Unknown]
  - Bronchitis [Unknown]
  - Drug hypersensitivity [Unknown]
  - Cystitis [Unknown]
  - Dermatitis contact [Unknown]
  - Food allergy [Unknown]
  - Viral infection [Not Recovered/Not Resolved]
  - Peripheral swelling [Unknown]
  - Illness [Unknown]
  - Oral herpes [Unknown]
  - Infusion site vesicles [Recovered/Resolved]
  - Skin exfoliation [Recovered/Resolved]
  - Vitiligo [Unknown]
  - Allergy to animal [Unknown]
  - Multiple allergies [Unknown]
  - Needle issue [Unknown]
  - Inappropriate schedule of product administration [Unknown]
  - Nasopharyngitis [Unknown]
  - Pharyngitis [Unknown]
  - Lymph gland infection [Unknown]
  - Upper respiratory tract infection [Recovering/Resolving]
  - Sinusitis [Unknown]
  - Infusion site haemorrhage [Unknown]
  - Influenza [Unknown]
  - Infusion site bruising [Unknown]
  - Chest pain [Unknown]
  - Influenza like illness [Unknown]
  - Infusion site erythema [Recovered/Resolved]
  - Infusion site swelling [Unknown]
  - Migraine [Unknown]
  - Headache [Unknown]
  - Diarrhoea [Unknown]
  - Pyrexia [Unknown]

NARRATIVE: CASE EVENT DATE: 20250617
